FAERS Safety Report 12749546 (Version 5)
Quarter: 2017Q4

REPORT INFORMATION
  Report Type: Spontaneous
  Country: JP (occurrence: JP)
  Receive Date: 20160916
  Receipt Date: 20171003
  Transmission Date: 20180320
  Serious: Yes (Other)
  Sender: FDA-Public Use
  Company Number: PHHY2016JP126752

PATIENT
  Age: 77 Year
  Sex: Female

DRUGS (4)
  1. TAXOTERE [Suspect]
     Active Substance: DOCETAXEL
     Indication: PRODUCT USED FOR UNKNOWN INDICATION
     Dosage: UNK
     Route: 042
     Dates: start: 200411
  2. CALCIUM [Concomitant]
     Active Substance: CALCIUM
     Indication: PRODUCT USED FOR UNKNOWN INDICATION
     Dosage: 500 MG, UNK
     Route: 048
  3. ZOMETA [Suspect]
     Active Substance: ZOLEDRONIC ACID
     Indication: METASTASES TO BONE
     Dosage: 4 MG, QD
     Route: 042
     Dates: start: 200807, end: 20111206
  4. NOLVADEX [Concomitant]
     Active Substance: TAMOXIFEN CITRATE
     Indication: BREAST CANCER
     Dosage: UNK
     Route: 048

REACTIONS (9)
  - Osteonecrosis of jaw [Unknown]
  - Jaw fracture [Not Recovered/Not Resolved]
  - Purulence [Unknown]
  - Exposed bone in jaw [Unknown]
  - Bone disorder [Recovering/Resolving]
  - Erythema [Unknown]
  - Swelling [Unknown]
  - Pain [Unknown]
  - Primary sequestrum [Unknown]

NARRATIVE: CASE EVENT DATE: 20110606
